FAERS Safety Report 16093618 (Version 1)
Quarter: 2019Q1

REPORT INFORMATION
  Report Type: Spontaneous
  Country: US (occurrence: US)
  Receive Date: 20190215
  Receipt Date: 20190215
  Transmission Date: 20190418
  Serious: Yes (Other)
  Sender: FDA-Public Use
  Company Number: None

PATIENT
  Age: 10 Year
  Sex: Male
  Weight: 29.03 kg

DRUGS (1)
  1. TAMIFLU [Suspect]
     Active Substance: OSELTAMIVIR PHOSPHATE
     Indication: INFLUENZA
     Dates: start: 20190124, end: 20190125

REACTIONS (12)
  - Crying [None]
  - Panic reaction [None]
  - Tremor [None]
  - Fear of death [None]
  - Sleep terror [None]
  - Anxiety [None]
  - Fear [None]
  - Hallucination [None]
  - Dyspnoea [None]
  - Visual impairment [None]
  - Hyperhidrosis [None]
  - Screaming [None]

NARRATIVE: CASE EVENT DATE: 20190124
